FAERS Safety Report 9518469 (Version 2)
Quarter: 2015Q2

REPORT INFORMATION
  Report Type: Spontaneous
  Country: US (occurrence: None)
  Receive Date: 20130910
  Receipt Date: 20150528
  Transmission Date: 20150821
  Serious: Yes (Hospitalization)
  Sender: FDA-Public Use
  Company Number: 13-08-020

PATIENT
  Age: 48 Year
  Sex: Male
  Weight: 101.61 kg

DRUGS (6)
  1. TOPIRAMATE. [Concomitant]
     Active Substance: TOPIRAMATE
  2. PANTOPRAZOLE [Concomitant]
     Active Substance: PANTOPRAZOLE SODIUM
  3. BENZPHETAMINE HYDROCHLORIDE. [Suspect]
     Active Substance: BENZPHETAMINE HYDROCHLORIDE
     Indication: OBESITY
  4. CLONIDINE. [Concomitant]
     Active Substance: CLONIDINE
  5. ARNLODIPINE [Concomitant]
  6. CARVEDILOL. [Concomitant]
     Active Substance: CARVEDILOL

REACTIONS (1)
  - Cerebrovascular accident [None]

NARRATIVE: CASE EVENT DATE: 20120110
